FAERS Safety Report 24310061 (Version 2)
Quarter: 2024Q4

REPORT INFORMATION
  Report Type: Spontaneous
  Country: US (occurrence: US)
  Receive Date: 20240912
  Receipt Date: 20241010
  Transmission Date: 20250115
  Serious: No
  Sender: ALK-ABELLO
  Company Number: US-ALK-ABELLO A/S-2024AA003234

PATIENT

DRUGS (1)
  1. ODACTRA [Suspect]
     Active Substance: DERMATOPHAGOIDES FARINAE\DERMATOPHAGOIDES PTERONYSSINUS
     Indication: Product used for unknown indication
     Dosage: UNK
     Dates: start: 20240806, end: 20240814

REACTIONS (2)
  - Throat tightness [Recovered/Resolved]
  - Throat irritation [Recovered/Resolved]

NARRATIVE: CASE EVENT DATE: 20240806
